FAERS Safety Report 25902692 (Version 1)
Quarter: 2025Q4

REPORT INFORMATION
  Report Type: Spontaneous
  Country: TH (occurrence: TH)
  Receive Date: 20251009
  Receipt Date: 20251009
  Transmission Date: 20260118
  Serious: Yes (Hospitalization)
  Sender: AMGEN
  Company Number: TH-AMGEN-THASP2025158168

PATIENT
  Age: 95 Year
  Sex: Female
  Weight: 73 kg

DRUGS (4)
  1. EVENITY [Suspect]
     Active Substance: ROMOSOZUMAB-AQQG
     Indication: Osteoporotic fracture
     Dosage: 210 MILLIGRAM, QMO
     Route: 058
     Dates: start: 20250724
  2. ASPIRIN [Concomitant]
     Active Substance: ASPIRIN
     Indication: Thrombosis prophylaxis
     Dosage: 81 (UNIT ABSENT), BID
  3. Caraten [Concomitant]
     Indication: Hypertension
     Dosage: 6.25 (UNIT ABSENT) HALF X2
  4. LASIX [Concomitant]
     Active Substance: FUROSEMIDE
     Indication: Renal failure
     Dosage: UNK UNK, BID

REACTIONS (3)
  - Brain stem infarction [Recovering/Resolving]
  - Lacunar infarction [Recovering/Resolving]
  - Intracranial aneurysm [Recovering/Resolving]

NARRATIVE: CASE EVENT DATE: 20250801
